FAERS Safety Report 5453432-7 (Version None)
Quarter: 2007Q3

REPORT INFORMATION
  Report Type: 
  Country: None (occurrence: None)
  Receive Date: 20070913
  Receipt Date: 20070904
  Transmission Date: 20080115
  Serious: Yes (Other)
  Sender: FDA-Public Use
  Company Number: 2007AP000967

PATIENT
  Age: 49 Year
  Sex: Male

DRUGS (1)
  1. ALLOPURINOL [Suspect]

REACTIONS (1)
  - SYNCOPE [None]
